FAERS Safety Report 6204664-1 (Version None)
Quarter: 2009Q2

REPORT INFORMATION
  Report Type: 
  Country: None (occurrence: None)
  Receive Date: 20090527
  Receipt Date: 20090327
  Transmission Date: 20091009
  Serious: Yes (Other)
  Sender: FDA-Public Use
  Company Number: FR-AVENTIS-200911234FR

PATIENT
  Age: 23 Year
  Sex: Male
  Weight: 74 kg

DRUGS (1)
  1. LOVENOX [Suspect]
     Indication: THROMBOSIS PROPHYLAXIS
     Route: 058
     Dates: start: 20090222, end: 20090326

REACTIONS (2)
  - DRUG ERUPTION [None]
  - ERYTHEMA MULTIFORME [None]
